FAERS Safety Report 18125503 (Version 1)
Quarter: 2020Q3

REPORT INFORMATION
  Report Type: Spontaneous
  Country: US (occurrence: US)
  Receive Date: 20200807
  Receipt Date: 20200807
  Transmission Date: 20201103
  Serious: No
  Sender: FDA-Public Use
  Company Number: US-ROCHE-2403458

PATIENT
  Age: 29 Year
  Sex: Female
  Weight: 61.29 kg

DRUGS (5)
  1. PERJETA [Suspect]
     Active Substance: PERTUZUMAB
     Route: 042
     Dates: end: 201912
  2. TAMOXIFEN [Concomitant]
     Active Substance: TAMOXIFEN
     Indication: HER2 POSITIVE BREAST CANCER
     Route: 048
     Dates: start: 201905, end: 201907
  3. HERCEPTIN [Suspect]
     Active Substance: TRASTUZUMAB
     Route: 042
     Dates: end: 201912
  4. HERCEPTIN [Suspect]
     Active Substance: TRASTUZUMAB
     Indication: HER2 POSITIVE BREAST CANCER
     Dosage: 6 MG/KG DOSING
     Route: 042
     Dates: start: 201810, end: 20190829
  5. PERJETA [Suspect]
     Active Substance: PERTUZUMAB
     Indication: HER2 POSITIVE BREAST CANCER
     Route: 042
     Dates: start: 201810, end: 20190829

REACTIONS (8)
  - Nausea [Unknown]
  - Rash macular [Unknown]
  - Dyspnoea [Unknown]
  - Swelling [Recovered/Resolved]
  - Pruritus [Unknown]
  - Burning sensation [Unknown]
  - Maternal exposure during pregnancy [Unknown]
  - Night sweats [Unknown]

NARRATIVE: CASE EVENT DATE: 20190927
